FAERS Safety Report 18337779 (Version 1)
Quarter: 2020Q4

REPORT INFORMATION
  Report Type: Spontaneous
  Country: IT (occurrence: IT)
  Receive Date: 20201002
  Receipt Date: 20201002
  Transmission Date: 20210113
  Serious: Yes (Other)
  Sender: FDA-Public Use
  Company Number: IT-LUPIN PHARMACEUTICALS INC.-2020-06743

PATIENT
  Age: 43 Year
  Sex: Female

DRUGS (7)
  1. PENTAGLOBIN [Concomitant]
     Active Substance: HUMAN IMMUNOGLOBULIN G
     Indication: COVID-19
     Dosage: 5 ML/KG/DAILY FOR 12 HOURS
     Route: 065
     Dates: start: 202004
  2. HYDROXYCHLOROQUINE SULFATE. [Suspect]
     Active Substance: HYDROXYCHLOROQUINE SULFATE
     Indication: COVID-19
     Dosage: 200 MILLIGRAM, BID
     Route: 065
     Dates: start: 202004
  3. AZITHROMYCIN ANHYDROUS. [Suspect]
     Active Substance: AZITHROMYCIN ANHYDROUS
     Indication: COVID-19
     Dosage: 500 MILLIGRAM, QD
     Route: 065
     Dates: start: 202004
  4. CEFTAROLINE [Concomitant]
     Active Substance: CEFTAROLINE
     Indication: PROPHYLAXIS
     Dosage: 600 UNITS
     Route: 065
     Dates: start: 202004
  5. COBICISTAT;DARUNAVIR [Concomitant]
     Active Substance: COBICISTAT\DARUNAVIR ETHANOLATE
     Indication: COVID-19
     Dosage: 800 MILLIGRAM, QD
     Route: 065
     Dates: start: 202004
  6. VITAMIN C [Concomitant]
     Active Substance: ASCORBIC ACID
     Indication: PROPHYLAXIS
     Dosage: 1.5 GRAM, QD
     Route: 065
     Dates: start: 202004
  7. ENOXAPARIN [Concomitant]
     Active Substance: ENOXAPARIN
     Indication: SUPPORTIVE CARE
     Dosage: 4000 INTERNATIONAL UNIT
     Route: 065
     Dates: start: 202004

REACTIONS (1)
  - Off label use [Unknown]

NARRATIVE: CASE EVENT DATE: 202004
